FAERS Safety Report 18365521 (Version 2)
Quarter: 2020Q4

REPORT INFORMATION
  Report Type: Spontaneous
  Country: US (occurrence: US)
  Receive Date: 20201009
  Receipt Date: 20201203
  Transmission Date: 20210114
  Serious: Yes (Hospitalization, Other)
  Sender: FDA-Public Use
  Company Number: US-TEVA-2020-US-1836308

PATIENT
  Age: 41 Year
  Sex: Male

DRUGS (29)
  1. AMLODIPINE/VALSARTAN TEVA [Suspect]
     Active Substance: AMLODIPINE\VALSARTAN
     Indication: HYPERTENSION
     Dosage: FORM STRENGTH - AMLODIPINE/VALSARTAN 5-160 MG PER TABLET
     Route: 065
     Dates: start: 20151019, end: 20151118
  2. EXFORGE [Suspect]
     Active Substance: AMLODIPINE BESYLATE\VALSARTAN
     Dosage: FORM STRENGTH: 5-160 MG
     Route: 048
     Dates: start: 20151019
  3. PROGRAF [Concomitant]
     Active Substance: TACROLIMUS
     Dosage: 2 MILLIGRAM DAILY; 1 MG BY MOUTH 2 TIMES DAILY
     Route: 048
     Dates: start: 20120801, end: 20171221
  4. MAGNESIUM GLUCONATE [Concomitant]
     Active Substance: MAGNESIUM GLUCONATE
     Dates: start: 20180604
  5. ULTRAM [Concomitant]
     Active Substance: TRAMADOL HYDROCHLORIDE
     Indication: PAIN
     Dosage: 1 TABLET BY MOUTH EVERY 6 HOURS AS NEEDED FOR PAIN
     Route: 048
     Dates: start: 20170930, end: 20180116
  6. AMLODIPINE/VALSARTAN TEVA [Suspect]
     Active Substance: AMLODIPINE\VALSARTAN
     Dosage: FORM STRENGTH - AMLODIPINE/VALSARTAN 5-160 MG PER TABLET
     Route: 065
     Dates: start: 20151221, end: 20160320
  7. AMLODIPINE/VALSARTAN TEVA [Suspect]
     Active Substance: AMLODIPINE\VALSARTAN
     Dosage: FORM STRENGTH - AMLODIPINE/VALSARTAN 5-160 MG PER TABLET
     Route: 065
     Dates: start: 20160601, end: 20160811
  8. MELOXICAM. [Concomitant]
     Active Substance: MELOXICAM
     Dates: start: 20170711
  9. AMLODIPINE/VALSARTAN TEVA [Suspect]
     Active Substance: AMLODIPINE\VALSARTAN
     Dosage: FORM STRENGTH - AMLODIPINE/VALSARTAN 5-160 MG PER TABLET
     Route: 065
     Dates: start: 20180316, end: 20180415
  10. ACYCLOVIR. [Concomitant]
     Active Substance: ACYCLOVIR
     Dates: start: 20180528
  11. MOBIC [Concomitant]
     Active Substance: MELOXICAM
     Indication: PAIN
     Dosage: 1-2 TABLETS BY MOUTH DAILY AS NEEDED
     Route: 048
     Dates: start: 20170930, end: 20180526
  12. AMLODIPINE/VALSARTAN TEVA [Suspect]
     Active Substance: AMLODIPINE\VALSARTAN
     Dosage: FORM STRENGTH - AMLODIPINE/VALSARTAN 5-160 MG PER TABLET
     Route: 065
     Dates: start: 20160922, end: 20170115
  13. AMLODIPINE/VALSARTAN TEVA [Suspect]
     Active Substance: AMLODIPINE\VALSARTAN
     Dosage: FORM STRENGTH - AMLODIPINE/VALSARTAN 5-160 MG PER TABLET
     Route: 065
     Dates: start: 20170424, end: 20170524
  14. PREDNISONE. [Concomitant]
     Active Substance: PREDNISONE
     Dates: start: 20180528
  15. EXFORGE [Suspect]
     Active Substance: AMLODIPINE BESYLATE\VALSARTAN
     Dosage: FORM STRENGTH: 5-160 MG
     Route: 048
     Dates: start: 20161107, end: 20171117
  16. CALCIUM [Concomitant]
     Active Substance: CALCIUM
     Indication: OSTEOPOROSIS
     Dosage: 2000 MILLIGRAM DAILY;
     Dates: start: 2010
  17. URSODIOL. [Concomitant]
     Active Substance: URSODIOL
     Dates: start: 20170711
  18. TRETINOIN. [Concomitant]
     Active Substance: TRETINOIN
     Dates: start: 20180626
  19. AMLODIPINE/VALSARTAN TEVA [Suspect]
     Active Substance: AMLODIPINE\VALSARTAN
     Dosage: FORM STRENGTH - AMLODIPINE/VALSARTAN 5-160 MG PER TABLET
     Route: 065
     Dates: start: 20170711, end: 20180114
  20. WARFARIN [Concomitant]
     Active Substance: WARFARIN
     Dates: start: 20180528
  21. METOPROLOL. [Concomitant]
     Active Substance: METOPROLOL
     Dates: start: 20180528
  22. VITAMIN D3 [Concomitant]
     Active Substance: CHOLECALCIFEROL
     Indication: HYPOVITAMINOSIS
     Dosage: 5000 IU (INTERNATIONAL UNIT) DAILY;
     Dates: start: 2003
  23. ALENDRONATE [Concomitant]
     Active Substance: ALENDRONATE SODIUM
     Dates: start: 20180406
  24. PANTOPRAZOLE [Concomitant]
     Active Substance: PANTOPRAZOLE
     Dates: start: 20180528
  25. CATALYN MULTIVITAMIN [Concomitant]
     Indication: VITAMIN SUPPLEMENTATION
     Dosage: ONE TABLET TWICE PER DAY
     Dates: start: 1998
  26. LIVERPLEX [Concomitant]
     Indication: PROPHYLAXIS
     Dosage: ONE CAPSULE TWICE PER DAY
     Dates: start: 2015, end: 2018
  27. IMMUNOPLEX [Concomitant]
     Dates: start: 2015
  28. OXYCODONE [Concomitant]
     Active Substance: OXYCODONE
     Dates: start: 20180528
  29. ALLOPURINOL. [Concomitant]
     Active Substance: ALLOPURINOL
     Dates: start: 20180528

REACTIONS (2)
  - Acute promyelocytic leukaemia [Not Recovered/Not Resolved]
  - Renal cell carcinoma stage I [Not Recovered/Not Resolved]

NARRATIVE: CASE EVENT DATE: 201707
